FAERS Safety Report 5206033-X (Version None)
Quarter: 2006Q4

REPORT INFORMATION
  Report Type: 
  Country: None (occurrence: None)
  Receive Date: 20061027
  Receipt Date: 20060808
  Transmission Date: 20070319
  Serious: No
  Sender: FDA-Public Use
  Company Number: 200616755US

PATIENT
  Age: 58 Year
  Sex: Male

DRUGS (3)
  1. KETEK [Suspect]
     Indication: SINUSITIS
     Dates: start: 20060701, end: 20060701
  2. ALLOPURINOL SODIUM [Concomitant]
  3. ALTACE [Concomitant]

REACTIONS (1)
  - FEELING ABNORMAL [None]
